FAERS Safety Report 25949194 (Version 1)
Quarter: 2025Q4

REPORT INFORMATION
  Report Type: Spontaneous
  Country: US (occurrence: None)
  Receive Date: 20251022
  Receipt Date: 20251022
  Transmission Date: 20260117
  Serious: No
  Sender: FDA-CTU
  Company Number: None

PATIENT

DRUGS (1)
  1. COPAXONE [Suspect]
     Active Substance: GLATIRAMER ACETATE

REACTIONS (8)
  - Therapy interrupted [None]
  - Symptom recurrence [None]
  - Hypoaesthesia [None]
  - Pain [None]
  - Fatigue [None]
  - Exercise tolerance decreased [None]
  - Band sensation [None]
  - Multiple sclerosis [None]

NARRATIVE: CASE EVENT DATE: 20251021
